FAERS Safety Report 15703171 (Version 1)
Quarter: 2018Q4

REPORT INFORMATION
  Report Type: Spontaneous
  Country: US (occurrence: US)
  Receive Date: 20181127
  Receipt Date: 20181127
  Transmission Date: 20190205
  Serious: Yes (Death, Life-Threatening, Hospitalization, Disabling, Other)
  Sender: FDA-Public Use
  Company Number: None

PATIENT
  Age: 25 Year
  Sex: Female
  Weight: 52.16 kg

DRUGS (4)
  1. METH [Concomitant]
     Active Substance: METHAMPHETAMINE
  2. ALCOHOL. [Concomitant]
     Active Substance: ALCOHOL
  3. NALTREXONE IMPLANT [Suspect]
     Active Substance: NALTREXONE
  4. XANAX [Concomitant]
     Active Substance: ALPRAZOLAM

REACTIONS (23)
  - Seizure [None]
  - Suicide attempt [None]
  - Delusion [None]
  - Hallucination, auditory [None]
  - Alcohol abuse [None]
  - Hypersensitivity [None]
  - Drug abuse [None]
  - Loss of employment [None]
  - Pain in extremity [None]
  - Post-traumatic stress disorder [None]
  - Flashback [None]
  - Feeling abnormal [None]
  - Vein disorder [None]
  - Nail discolouration [None]
  - Fear of death [None]
  - Victim of sexual abuse [None]
  - Dysphagia [None]
  - Angina pectoris [None]
  - Renal pain [None]
  - Neuralgia [None]
  - Nausea [None]
  - Dependence [None]
  - Drug withdrawal syndrome [None]

NARRATIVE: CASE EVENT DATE: 20180704
